FAERS Safety Report 21875455 (Version 1)
Quarter: 2023Q1

REPORT INFORMATION
  Report Type: Spontaneous
  Country: FR (occurrence: FR)
  Receive Date: 20230118
  Receipt Date: 20230118
  Transmission Date: 20230418
  Serious: Yes (Hospitalization)
  Sender: FDA-Public Use
  Company Number: None

PATIENT
  Age: 20 Year
  Sex: Female

DRUGS (10)
  1. MIANSERIN HYDROCHLORIDE [Suspect]
     Active Substance: MIANSERIN HYDROCHLORIDE
     Indication: Major depression
     Dosage: DURATION : 35 DAYS
     Dates: start: 20200326, end: 20200430
  2. PAROXETINE HYDROCHLORIDE [Suspect]
     Active Substance: PAROXETINE HYDROCHLORIDE
     Indication: Major depression
     Dosage: PAROXETINE HYDROCHLORIDE, ANHYDROUS, DURATION : 51 DAYS
     Dates: start: 20200310, end: 20200430
  3. LOXAPINE [Suspect]
     Active Substance: LOXAPINE
     Indication: Major depression
     Dosage: DURATION : 7 DAYS
     Dates: start: 20200310, end: 20200317
  4. ATARAX [Suspect]
     Active Substance: HYDROXYZINE HYDROCHLORIDE
     Indication: Major depression
     Dosage: DURATION : 23 DAYS
     Dates: start: 20200310, end: 20200402
  5. TROPATEPINE HYDROCHLORIDE [Suspect]
     Active Substance: TROPATEPINE HYDROCHLORIDE
     Indication: Major depression
     Dosage: DURATION : 21 DAYS
     Dates: start: 20200312, end: 20200402
  6. PRAZEPAM [Suspect]
     Active Substance: PRAZEPAM
     Indication: Major depression
     Dosage: DURATION : 29 DAYS
     Dates: start: 20200401, end: 20200430
  7. LAMICTAL [Suspect]
     Active Substance: LAMOTRIGINE
     Indication: Major depression
     Dosage: 2 DOSAGE FORMS DAILY; 2 TABS/D, UNIT DOSE : 2 DF, OD, DURATION : 20 DAYS
     Dates: start: 20200410, end: 20200430
  8. LAMICTAL [Suspect]
     Active Substance: LAMOTRIGINE
     Dosage: 3 DOSAGE FORMS DAILY; 3 TABS/D, UNIT DOSE : 3 DF, OD, DURATION : 3 DAYS
     Dates: start: 20200407, end: 20200410
  9. RIVOTRIL [Suspect]
     Active Substance: CLONAZEPAM
     Indication: Major depression
     Dosage: DURATION : 15 DAYS
     Dates: start: 20200317, end: 20200401
  10. TRIMEPRAZINE [Suspect]
     Active Substance: TRIMEPRAZINE
     Indication: Major depression
     Dosage: DURATION : 24 DAYS
     Dates: start: 20200406, end: 20200430

REACTIONS (1)
  - Drug reaction with eosinophilia and systemic symptoms [Recovering/Resolving]

NARRATIVE: CASE EVENT DATE: 20200430
